FAERS Safety Report 8539901-1 (Version None)
Quarter: 2012Q2

REPORT INFORMATION
  Report Type: 
  Country: None (occurrence: None)
  Receive Date: 20120412
  Receipt Date: 20090107
  Transmission Date: 20120825
  Serious: Yes (Other)
  Sender: FDA-Public Use
  Company Number: PHEH2004US03578

PATIENT
  Age: 67 Year
  Sex: Male
  Weight: 79.4 kg

DRUGS (6)
  1. FLOMAX ^BOEHRINGER INELHEIM^ (TAMSULOSIN HYDROCHLORIDE) [Concomitant]
  2. AREDIA [Suspect]
     Indication: MULTIPLE MYELOMA
     Dosage: 90 MG, QMO,IV INFUSION
     Route: 041
     Dates: start: 19980101, end: 20020101
  3. TOPROL-XL [Concomitant]
  4. PREDNISONE( PREEDNISONE) [Concomitant]
  5. ZOMETA [Suspect]
     Indication: MULTIPLE MYELOMA
     Dosage: 4 MG , QMO,INFUSION
     Route: 041
     Dates: start: 20020101, end: 20040101
  6. ELINASE (SERRAPEPTASE) [Concomitant]

REACTIONS (4)
  - WOUND DRAINAGE [None]
  - PAIN [None]
  - BONE DISORDER [None]
  - OSTEONECROSIS [None]
